FAERS Safety Report 11589057 (Version 6)
Quarter: 2016Q2

REPORT INFORMATION
  Report Type: Spontaneous
  Country: US (occurrence: US)
  Receive Date: 20151002
  Receipt Date: 20160504
  Transmission Date: 20160815
  Serious: No
  Sender: FDA-Public Use
  Company Number: US-PFIZER INC-2015314667

PATIENT
  Age: 67 Year
  Sex: Female
  Weight: 83 kg

DRUGS (3)
  1. IBRANCE [Suspect]
     Active Substance: PALBOCICLIB
     Dosage: 75 MG, CYCLIC (DAYS 1-21 Q28 DAYS)
     Route: 048
     Dates: start: 20150903, end: 20160106
  2. IBRANCE [Suspect]
     Active Substance: PALBOCICLIB
     Indication: BREAST CANCER METASTATIC
     Dosage: 75 MG, CYCLIC (DAY 1-21 Q 28 DAYS)
     Route: 048
     Dates: start: 20150903
  3. FASLODEX [Suspect]
     Active Substance: FULVESTRANT
     Indication: HORMONE THERAPY
     Dosage: UNK

REACTIONS (11)
  - Disease progression [Unknown]
  - Diarrhoea [Unknown]
  - Weight decreased [Unknown]
  - White blood cell count decreased [Unknown]
  - Pain in extremity [Unknown]
  - Breast cancer metastatic [Unknown]
  - Decreased appetite [Unknown]
  - Dehydration [Unknown]
  - Infection [Unknown]
  - Blood count abnormal [Unknown]
  - Dry eye [Unknown]

NARRATIVE: CASE EVENT DATE: 20150903
